FAERS Safety Report 10656714 (Version 1)
Quarter: 2014Q4

REPORT INFORMATION
  Report Type: Spontaneous
  Country: FR (occurrence: FR)
  Receive Date: 20141217
  Receipt Date: 20141217
  Transmission Date: 20150529
  Serious: Yes (Death, Hospitalization)
  Sender: FDA-Public Use
  Company Number: PHHY2014FR159575

PATIENT
  Age: 46 Year
  Sex: Male

DRUGS (3)
  1. BACLOFEN. [Suspect]
     Active Substance: BACLOFEN
     Indication: ALCOHOLISM
     Dosage: UNK
     Route: 065
  2. OXAZEPAM. [Suspect]
     Active Substance: OXAZEPAM
     Indication: ALCOHOLISM
     Dosage: UNK
     Route: 065
  3. ALIMEMAZINE [Suspect]
     Active Substance: TRIMEPRAZINE
     Indication: ALCOHOLISM
     Dosage: UNK
     Route: 065

REACTIONS (12)
  - Toxicity to various agents [Unknown]
  - Hypothermia [Unknown]
  - Multi-organ failure [Fatal]
  - Loss of consciousness [Unknown]
  - Myocardial infarction [Unknown]
  - Cardiac arrest [Fatal]
  - Lactic acidosis [Unknown]
  - Product use issue [Unknown]
  - Coma [Unknown]
  - Hepatic failure [Fatal]
  - Acute kidney injury [Fatal]
  - Mydriasis [Unknown]
